FAERS Safety Report 12162629 (Version 20)
Quarter: 2019Q4

REPORT INFORMATION
  Report Type: Spontaneous
  Country: US (occurrence: US)
  Receive Date: 20160309
  Receipt Date: 20191105
  Transmission Date: 20200122
  Serious: Yes (Hospitalization, Other)
  Sender: FDA-Public Use
  Company Number: US-PFIZER INC-2016120238

PATIENT
  Age: 80 Year
  Sex: Male
  Weight: 85 kg

DRUGS (15)
  1. SUTENT [Suspect]
     Active Substance: SUNITINIB MALATE
     Dosage: 25 MG, DAILY
     Dates: start: 20170501
  2. SUTENT [Suspect]
     Active Substance: SUNITINIB MALATE
     Dosage: 25 MG, DAILY
     Route: 048
     Dates: start: 20181025
  3. SIMVASTATIN. [Concomitant]
     Active Substance: SIMVASTATIN
     Dosage: UNK (SINCE 4 YEARS)
  4. TURMERIC [Concomitant]
     Active Substance: HERBALS\TURMERIC
     Dosage: UNK
  5. SUTENT [Suspect]
     Active Substance: SUNITINIB MALATE
     Indication: METASTATIC RENAL CELL CARCINOMA
     Dosage: 25 MG, DAILY
     Dates: start: 20160209
  6. GLIPIZIDE. [Concomitant]
     Active Substance: GLIPIZIDE
     Dosage: UNK (SINCE 3 YEARS AGO)
  7. GREEN TEA EXTRACT [Concomitant]
     Dosage: UNK
  8. MIRACLE MINERAL SOLUTION [Concomitant]
     Active Substance: SODIUM CHLORITE
     Dosage: UNK
  9. SUTENT [Suspect]
     Active Substance: SUNITINIB MALATE
     Dosage: 37.5 MG, DAILY
     Route: 048
     Dates: start: 201604, end: 20161003
  10. COZAAR [Concomitant]
     Active Substance: LOSARTAN POTASSIUM
     Dosage: UNK (SINCE 5 YEARS)
  11. SUTENT [Suspect]
     Active Substance: SUNITINIB MALATE
     Dosage: 25 MG, 1X/DAY
     Dates: start: 20160309
  12. SUTENT [Suspect]
     Active Substance: SUNITINIB MALATE
     Dosage: 37.5 MG, DAILY IN THE EVENING
     Dates: start: 201605, end: 20161001
  13. ACTOS [Concomitant]
     Active Substance: PIOGLITAZONE HYDROCHLORIDE
     Dosage: UNK (SINCE 1 YEAR AGO)
  14. FLAXSEED [Concomitant]
     Active Substance: FLAX SEED
     Dosage: UNK
  15. SUTENT [Suspect]
     Active Substance: SUNITINIB MALATE
     Dosage: 25 MG, DAILY
     Route: 048
     Dates: start: 201602, end: 201604

REACTIONS (34)
  - Stomatitis [Not Recovered/Not Resolved]
  - Tongue blistering [Not Recovered/Not Resolved]
  - Lip pain [Recovered/Resolved]
  - Oral mucosal blistering [Not Recovered/Not Resolved]
  - Palmar-plantar erythrodysaesthesia syndrome [Not Recovered/Not Resolved]
  - Glossodynia [Not Recovered/Not Resolved]
  - Balance disorder [Unknown]
  - Diarrhoea [Unknown]
  - Taste disorder [Unknown]
  - Pain [Unknown]
  - Peripheral swelling [Not Recovered/Not Resolved]
  - Tongue discomfort [Recovering/Resolving]
  - Nasal discomfort [Recovered/Resolved]
  - Cervical spinal stenosis [Recovering/Resolving]
  - Muscle spasms [Recovering/Resolving]
  - Limb discomfort [Not Recovered/Not Resolved]
  - Myelopathy [Recovering/Resolving]
  - Glossitis [Recovering/Resolving]
  - Epistaxis [Unknown]
  - Sensory loss [Recovering/Resolving]
  - Asthenia [Unknown]
  - Tooth disorder [Recovered/Resolved]
  - Hair colour changes [Not Recovered/Not Resolved]
  - Oral discomfort [Unknown]
  - Muscular weakness [Not Recovered/Not Resolved]
  - Weight increased [Recovered/Resolved]
  - Decreased appetite [Not Recovered/Not Resolved]
  - Fatigue [Not Recovered/Not Resolved]
  - Poor quality sleep [Unknown]
  - Food allergy [Unknown]
  - Oral pain [Recovered/Resolved]
  - Ageusia [Recovering/Resolving]
  - Joint swelling [Not Recovered/Not Resolved]
  - Flatulence [Not Recovered/Not Resolved]

NARRATIVE: CASE EVENT DATE: 2016
